FAERS Safety Report 25580827 (Version 1)
Quarter: 2025Q3

REPORT INFORMATION
  Report Type: Spontaneous
  Country: US (occurrence: US)
  Receive Date: 20250718
  Receipt Date: 20250718
  Transmission Date: 20251020
  Serious: No
  Sender: NOVO NORDISK
  Company Number: US-NOVOPROD-1435503

PATIENT
  Age: 31 Year
  Sex: Female

DRUGS (3)
  1. WEGOVY [Suspect]
     Active Substance: SEMAGLUTIDE
     Indication: Weight control
  2. DUPIXENT [Suspect]
     Active Substance: DUPILUMAB
     Indication: Nasal polyps
     Route: 058
  3. FLUOXETINE HYDROCHLORIDE [Concomitant]
     Active Substance: FLUOXETINE HYDROCHLORIDE
     Indication: Product used for unknown indication

REACTIONS (4)
  - Productive cough [Recovering/Resolving]
  - Dysphonia [Recovering/Resolving]
  - Headache [Not Recovered/Not Resolved]
  - Gastrooesophageal reflux disease [Recovering/Resolving]
